FAERS Safety Report 6400909-3 (Version None)
Quarter: 2009Q4

REPORT INFORMATION
  Report Type: 
  Country: None (occurrence: None)
  Receive Date: 20091009
  Receipt Date: 20090925
  Transmission Date: 20100525
  Serious: Yes (Hospitalization)
  Sender: FDA-Public Use
  Company Number: 230785J09USA

PATIENT
  Age: 31 Year
  Sex: Female
  Weight: 59 kg

DRUGS (4)
  1. REBIF [Suspect]
     Indication: MULTIPLE SCLEROSIS
     Dosage: 44 MCG, 3 IN 1 WEEKS, SUBCUTANEOUS
     Route: 058
     Dates: start: 20090702
  2. SYNTHROID [Concomitant]
  3. TOPAMAX [Concomitant]
  4. KETOPROFEN [Concomitant]

REACTIONS (3)
  - APPENDICITIS [None]
  - DEPRESSION [None]
  - OVARIAN CYST [None]
